FAERS Safety Report 12641417 (Version 2)
Quarter: 2016Q3

REPORT INFORMATION
  Report Type: Spontaneous
  Country: US (occurrence: US)
  Receive Date: 20160810
  Receipt Date: 20160812
  Transmission Date: 20161109
  Serious: No
  Sender: FDA-Public Use
  Company Number: US-PFIZER INC-2016378024

PATIENT
  Age: 55 Year
  Sex: Female

DRUGS (1)
  1. IBRANCE [Suspect]
     Active Substance: PALBOCICLIB
     Indication: NEOPLASM MALIGNANT
     Dosage: 125 MG, DAILY
     Route: 048
     Dates: start: 201608

REACTIONS (6)
  - Hypoaesthesia [Unknown]
  - Abdominal pain upper [Unknown]
  - Fatigue [Unknown]
  - Muscle spasms [Unknown]
  - Dry skin [Unknown]
  - Hair growth abnormal [Unknown]
